FAERS Safety Report 5776129-2 (Version None)
Quarter: 2008Q2

REPORT INFORMATION
  Report Type: 
  Country: None (occurrence: None)
  Receive Date: 20080617
  Receipt Date: 20080602
  Transmission Date: 20081010
  Serious: Yes (Life-Threatening)
  Sender: FDA-Public Use
  Company Number: JP-GENENTECH-257106

PATIENT
  Age: 54 Year
  Sex: Male

DRUGS (7)
  1. BEVACIZUMAB [Suspect]
     Indication: COLORECTAL CANCER METASTATIC
     Dosage: 5 MG/KG, QD
     Route: 041
     Dates: start: 20071127
  2. OXALIPLATIN [Suspect]
     Indication: COLORECTAL CANCER METASTATIC
     Dosage: UNK, UNK
     Route: 041
     Dates: start: 20070101, end: 20080226
  3. FLUOROURACIL [Suspect]
     Indication: COLORECTAL CANCER METASTATIC
     Dosage: UNK, UNK
     Route: 042
     Dates: start: 20070101, end: 20080301
  4. ISOVORIN [Suspect]
     Indication: COLORECTAL CANCER METASTATIC
     Dosage: UNK, UNK
     Route: 041
     Dates: start: 20070101, end: 20080229
  5. DECADRON [Concomitant]
     Indication: DRUG USE FOR UNKNOWN INDICATION
     Dates: start: 20071127
  6. NASEA (JAPAN) [Concomitant]
     Indication: DRUG USE FOR UNKNOWN INDICATION
     Dosage: UNK, UNK
     Dates: start: 20071128
  7. KYTRIL [Concomitant]
     Indication: DRUG USE FOR UNKNOWN INDICATION
     Dates: start: 20071127

REACTIONS (2)
  - ANAPHYLACTOID SHOCK [None]
  - NEUTROPHIL COUNT DECREASED [None]
